FAERS Safety Report 19593737 (Version 2)
Quarter: 2021Q3

REPORT INFORMATION
  Report Type: Spontaneous
  Country: JP (occurrence: JP)
  Receive Date: 20210722
  Receipt Date: 20210901
  Transmission Date: 20211014
  Serious: Yes (Other)
  Sender: FDA-Public Use
  Company Number: JP-ASTELLAS-2020JP004603

PATIENT
  Age: 8 Year
  Sex: Male
  Weight: 40 kg

DRUGS (10)
  1. XOSPATA [Suspect]
     Active Substance: GILTERITINIB
     Dosage: 120 MG/DAY, UNKNOWN FREQ.
     Route: 048
     Dates: start: 20200312, end: 20200409
  2. FLUDARABINE PHOSPHATE. [Concomitant]
     Active Substance: FLUDARABINE PHOSPHATE
     Indication: ACUTE MYELOID LEUKAEMIA
     Dosage: UNK UNK, UNKNOWN FREQ.
     Route: 065
  3. CYTARABINE. [Concomitant]
     Active Substance: CYTARABINE
     Indication: ACUTE MYELOID LEUKAEMIA
     Dosage: UNK UNK, UNKNOWN FREQ.
     Route: 065
  4. MYCOPHENOLATE MOFETIL. [Concomitant]
     Active Substance: MYCOPHENOLATE MOFETIL
     Indication: PROPHYLAXIS AGAINST GRAFT VERSUS HOST DISEASE
     Dosage: UNK UNK, UNKNOWN FREQ.
     Route: 065
  5. PROGRAF [Suspect]
     Active Substance: TACROLIMUS
     Indication: PROPHYLAXIS AGAINST GRAFT VERSUS HOST DISEASE
     Dosage: UNK UNK, UNKNOWN FREQ.
     Route: 048
  6. MELPHALAN. [Concomitant]
     Active Substance: MELPHALAN
     Indication: CHEMOTHERAPY
     Route: 065
  7. FLUDARABINE PHOSPHATE. [Concomitant]
     Active Substance: FLUDARABINE PHOSPHATE
     Indication: CHEMOTHERAPY
     Route: 065
  8. IDARUBICIN HYDROCHLORIDE. [Concomitant]
     Active Substance: IDARUBICIN HYDROCHLORIDE
     Indication: ACUTE MYELOID LEUKAEMIA
     Dosage: UNK UNK, UNKNOWN FREQ.
     Route: 065
  9. XOSPATA [Suspect]
     Active Substance: GILTERITINIB
     Indication: ACUTE MYELOID LEUKAEMIA
     Dosage: 80 MG/DAY, UNKNOWN FREQ.
     Route: 048
     Dates: start: 20200306, end: 20200311
  10. CYCLOPHOSPHAMIDE MONOHYDRATE [Concomitant]
     Active Substance: CYCLOPHOSPHAMIDE
     Indication: PROPHYLAXIS AGAINST GRAFT VERSUS HOST DISEASE
     Dosage: UNK UNK, UNKNOWN FREQ.
     Route: 065

REACTIONS (8)
  - Blood lactate dehydrogenase increased [Recovered/Resolved]
  - Off label use [Unknown]
  - Neurological symptom [Unknown]
  - Adenovirus infection [Unknown]
  - Aspartate aminotransferase increased [Recovered/Resolved]
  - End stage renal disease [Unknown]
  - Alanine aminotransferase increased [Recovered/Resolved]
  - Cystitis viral [Unknown]

NARRATIVE: CASE EVENT DATE: 20200306
